FAERS Safety Report 5787049-1 (Version None)
Quarter: 2008Q2

REPORT INFORMATION
  Report Type: 
  Country: None (occurrence: None)
  Receive Date: 20080625
  Receipt Date: 20080616
  Transmission Date: 20081010
  Serious: Yes (Hospitalization)
  Sender: FDA-Public Use
  Company Number: PHHY2008DE11449

PATIENT
  Sex: Female

DRUGS (10)
  1. CLOZAPINE [Suspect]
     Indication: SCHIZOPHRENIA
     Dosage: 12.5 MG UPTO 550 MG/DAY
     Route: 048
     Dates: start: 20070402, end: 20070525
  2. CLOZAPINE [Suspect]
     Dosage: 600 MG/DAY
     Route: 048
     Dates: start: 20070526, end: 20071007
  3. HALDOL [Concomitant]
     Dosage: 5 MG/DAY
     Route: 048
     Dates: start: 20070526
  4. AKINETON [Concomitant]
     Dosage: 4 MG/DAY
     Route: 048
     Dates: start: 20070526
  5. INVEGA (PALIPERIDONE) [Concomitant]
     Dosage: 6 MG/DAY
     Route: 048
     Dates: start: 20070905
  6. GABAPENTIN [Concomitant]
     Dosage: 300 - 1800 MG/DAY
     Route: 048
     Dates: start: 20070728, end: 20071004
  7. GABAPENTIN [Concomitant]
     Dosage: 2500 MG/DAY
     Route: 048
     Dates: start: 20071005
  8. GASTROZEPIN [Concomitant]
     Dosage: 50 MG /DAY
     Route: 048
     Dates: start: 20070601
  9. LAXOBERAL ^BOEHRINGER INGELHEIM^ [Concomitant]
     Dosage: 4-8 GTT
     Dates: start: 20071002
  10. DURAGESIC-100 [Concomitant]
     Dosage: 12UG/DAY
     Dates: start: 20071005

REACTIONS (1)
  - PAROTITIS [None]
